FAERS Safety Report 6425704-0 (Version None)
Quarter: 2009Q4

REPORT INFORMATION
  Report Type: 
  Country: None (occurrence: None)
  Receive Date: 20091103
  Receipt Date: 20091021
  Transmission Date: 20100525
  Serious: Yes (Hospitalization)
  Sender: FDA-Public Use
  Company Number: PHHY2009GB45974

PATIENT
  Age: 55 Year
  Sex: Female

DRUGS (1)
  1. ACLASTA [Suspect]

REACTIONS (5)
  - INFLUENZA LIKE ILLNESS [None]
  - MALAISE [None]
  - PAIN [None]
  - PYREXIA [None]
  - TREMOR [None]
